FAERS Safety Report 12263293 (Version 1)
Quarter: 2016Q2

REPORT INFORMATION
  Report Type: Other
  Country: IT (occurrence: IT)
  Receive Date: 20160413
  Receipt Date: 20160413
  Transmission Date: 20160815
  Serious: Yes (Other)
  Sender: FDA-Public Use
  Company Number: IT-MYLANLABS-2016M1015247

PATIENT

DRUGS (5)
  1. OLANZAPINA MYLAN PHARMA 10 MG COMPRESSE ORODISPERSIBILI [Suspect]
     Active Substance: OLANZAPINE
     Dosage: 30 MG, QD
     Dates: start: 20160406
  2. SERTRALINE HYDROCHLORIDE. [Concomitant]
     Active Substance: SERTRALINE HYDROCHLORIDE
     Indication: PRODUCT USED FOR UNKNOWN INDICATION
     Dosage: 50 MG, UNK
     Route: 048
  3. OLANZAPINA MYLAN PHARMA 10 MG COMPRESSE ORODISPERSIBILI [Suspect]
     Active Substance: OLANZAPINE
     Indication: PSYCHOTIC DISORDER
     Dosage: 30 MG, QD
     Route: 048
     Dates: start: 20151001
  4. LARGACTIL                          /00011902/ [Concomitant]
     Active Substance: CHLORPROMAZINE HYDROCHLORIDE
     Indication: PRODUCT USED FOR UNKNOWN INDICATION
     Dosage: 25 MG, UNK
     Route: 048
  5. OLANZAPINA MYLAN PHARMA 10 MG COMPRESSE ORODISPERSIBILI [Suspect]
     Active Substance: OLANZAPINE
     Dosage: 20 MG, QD

REACTIONS (7)
  - Suspiciousness [Not Recovered/Not Resolved]
  - Hallucination [Not Recovered/Not Resolved]
  - Aggression [Not Recovered/Not Resolved]
  - Agitation [Not Recovered/Not Resolved]
  - Abnormal behaviour [Not Recovered/Not Resolved]
  - Drug ineffective [Not Recovered/Not Resolved]
  - Obsessive thoughts [Not Recovered/Not Resolved]
